FAERS Safety Report 8167348-9 (Version None)
Quarter: 2012Q1

REPORT INFORMATION
  Report Type: 
  Country: None (occurrence: None)
  Receive Date: 20120227
  Receipt Date: 20120223
  Transmission Date: 20120608
  Serious: Yes (Other)
  Sender: FDA-Public Use
  Company Number: US-JNJFOC-20120212655

PATIENT
  Sex: Female
  Weight: 104.33 kg

DRUGS (6)
  1. NAPROSYN [Suspect]
     Indication: PAIN
     Route: 048
     Dates: end: 20110101
  2. NUCYNTA [Suspect]
     Dosage: 2 X 50 MG
     Route: 048
     Dates: start: 20111001
  3. NUCYNTA [Suspect]
     Indication: SPINAL FUSION SURGERY
     Dosage: 2 X 50 MG EVERY 4-6 HOURS
     Route: 048
  4. NUCYNTA [Suspect]
     Dosage: EVERY 4-6 HOURS
     Route: 048
  5. NUCYNTA [Suspect]
     Dosage: 50 MG X 2  EVERY 4-6 HOURS
     Route: 048
     Dates: start: 20110101, end: 20120223
  6. NUCYNTA ER [Suspect]
     Indication: SPINAL FUSION SURGERY
     Dosage: 50 MG TABLETS TWICE DAILY
     Route: 048
     Dates: start: 20120223

REACTIONS (5)
  - ABDOMINAL DISCOMFORT [None]
  - GASTRIC ULCER [None]
  - DRUG INEFFECTIVE [None]
  - NAUSEA [None]
  - BLOOD PRESSURE INCREASED [None]
